FAERS Safety Report 8939712 (Version 1)
Quarter: 2012Q4

REPORT INFORMATION
  Report Type: Report from Study
  Country: LV (occurrence: LV)
  Receive Date: 20121130
  Receipt Date: 20121130
  Transmission Date: 20130627
  Serious: Yes (Hospitalization)
  Sender: FDA-Public Use
  Company Number: PHHO2012LV003410

PATIENT
  Sex: Female
  Weight: 99 kg

DRUGS (3)
  1. CERTICAN [Suspect]
     Indication: RENAL TRANSPLANT
     Dosage: 0.75 mg, BID
     Route: 048
     Dates: start: 20120119
  2. PREDNISOLONE [Suspect]
     Indication: RENAL TRANSPLANT
     Dosage: 10 mg, QD
     Route: 048
     Dates: start: 20111229
  3. MYFORTIC [Suspect]
     Indication: RENAL TRANSPLANT
     Dosage: 360 mg, BID
     Route: 048
     Dates: start: 20110208, end: 20110211

REACTIONS (5)
  - Dyspnoea [Unknown]
  - Nausea [Recovered/Resolved]
  - Diarrhoea [Recovered/Resolved]
  - Pyrexia [Unknown]
  - Blood creatinine increased [Unknown]
